FAERS Safety Report 12387964 (Version 1)
Quarter: 2016Q2

REPORT INFORMATION
  Report Type: Spontaneous
  Country: US (occurrence: None)
  Receive Date: 20160519
  Receipt Date: 20160519
  Transmission Date: 20160815
  Serious: Yes (Death, Life-Threatening, Hospitalization)
  Sender: FDA-Public Use
  Company Number: None

PATIENT
  Age: 55 Year
  Sex: Female
  Weight: 76.66 kg

DRUGS (1)
  1. OPDIVO [Suspect]
     Active Substance: NIVOLUMAB
     Indication: NEOPLASM MALIGNANT
     Route: 042
     Dates: start: 20160303, end: 20160303

REACTIONS (4)
  - Pyrexia [None]
  - White blood cell count increased [None]
  - Infection [None]
  - Asthenia [None]

NARRATIVE: CASE EVENT DATE: 20160307
